FAERS Safety Report 24220831 (Version 10)
Quarter: 2024Q4

REPORT INFORMATION
  Report Type: Spontaneous
  Country: PT (occurrence: PT)
  Receive Date: 20240818
  Receipt Date: 20241206
  Transmission Date: 20250115
  Serious: Yes (Death)
  Sender: ROCHE
  Company Number: None

PATIENT

DRUGS (182)
  1. TOCILIZUMAB [Suspect]
     Active Substance: TOCILIZUMAB
     Indication: Product used for unknown indication
     Dosage: UNK, UNKNOWN
     Route: 065
  2. ANASTROZOLE [Suspect]
     Active Substance: ANASTROZOLE
     Indication: Product used for unknown indication
     Dosage: UNK
     Route: 065
  3. ANASTROZOLE [Suspect]
     Active Substance: ANASTROZOLE
     Indication: Product used for unknown indication
     Dosage: UNK, UNKNOWN
     Route: 065
  4. ANASTROZOLE [Suspect]
     Active Substance: ANASTROZOLE
     Dosage: UNK
     Route: 065
  5. ENOXAPARIN SODIUM [Suspect]
     Active Substance: ENOXAPARIN SODIUM
     Indication: Product used for unknown indication
     Dosage: UNK
     Route: 065
  6. ENOXAPARIN SODIUM [Suspect]
     Active Substance: ENOXAPARIN SODIUM
     Indication: Product used for unknown indication
     Dosage: UNK, UNKNOWN
     Route: 065
  7. ENOXAPARIN SODIUM [Suspect]
     Active Substance: ENOXAPARIN SODIUM
     Dosage: UNK
     Route: 065
  8. ESCITALOPRAM [Suspect]
     Active Substance: ESCITALOPRAM OXALATE
     Indication: Product used for unknown indication
     Dosage: 5 MG
     Route: 065
  9. ESCITALOPRAM [Suspect]
     Active Substance: ESCITALOPRAM OXALATE
     Indication: Product used for unknown indication
     Dosage: 5 MG, UNKNOWN
     Route: 065
  10. ESCITALOPRAM [Suspect]
     Active Substance: ESCITALOPRAM OXALATE
     Dosage: 5 MG
     Route: 065
  11. ETANERCEPT [Suspect]
     Active Substance: ETANERCEPT
     Indication: Product used for unknown indication
     Dosage: UNK
     Route: 065
  12. ETANERCEPT [Suspect]
     Active Substance: ETANERCEPT
     Indication: Product used for unknown indication
     Dosage: UNK, UNKNOWN
     Route: 065
  13. ETANERCEPT [Suspect]
     Active Substance: ETANERCEPT
     Dosage: UNK
     Route: 065
  14. EXEMESTANE [Suspect]
     Active Substance: EXEMESTANE
     Indication: Product used for unknown indication
     Dosage: 35 G
     Route: 065
  15. EXEMESTANE [Suspect]
     Active Substance: EXEMESTANE
     Indication: Product used for unknown indication
     Dosage: 35 G, UNKNOWN
     Route: 065
  16. EXEMESTANE [Suspect]
     Active Substance: EXEMESTANE
     Dosage: 35 G
     Route: 065
  17. PREGABALIN [Suspect]
     Active Substance: PREGABALIN
     Indication: Product used for unknown indication
     Dosage: 50 MG
     Route: 065
  18. PREGABALIN [Suspect]
     Active Substance: PREGABALIN
     Indication: Product used for unknown indication
     Dosage: 50 MG, UNKNOWN
     Route: 065
  19. PREGABALIN [Suspect]
     Active Substance: PREGABALIN
     Dosage: 50 MG
     Route: 065
  20. MYCOPHENOLATE SODIUM [Suspect]
     Active Substance: MYCOPHENOLATE SODIUM
     Indication: Product used for unknown indication
     Dosage: UNK, UNKNOWN
     Route: 065
  21. ACECLOFENAC [Suspect]
     Active Substance: ACECLOFENAC
     Indication: Product used for unknown indication
     Dosage: 100 MG
     Route: 065
  22. ACECLOFENAC [Suspect]
     Active Substance: ACECLOFENAC
     Indication: Product used for unknown indication
     Dosage: 100 MG, UNKNOWN
     Route: 065
  23. ACECLOFENAC [Suspect]
     Active Substance: ACECLOFENAC
     Dosage: 100 MG
     Route: 065
  24. ASPIRIN [Suspect]
     Active Substance: ASPIRIN
     Indication: Product used for unknown indication
     Dosage: 100 MG, UNKNOWN
     Route: 065
  25. ASPIRIN [Suspect]
     Active Substance: ASPIRIN
     Dosage: 100 MG
     Route: 065
  26. AGOMELATINE [Suspect]
     Active Substance: AGOMELATINE
     Indication: Product used for unknown indication
     Dosage: UNK
     Route: 065
  27. AGOMELATINE [Suspect]
     Active Substance: AGOMELATINE
     Indication: Product used for unknown indication
     Dosage: UNK, UNKNOWN
     Route: 065
  28. AGOMELATINE [Suspect]
     Active Substance: AGOMELATINE
     Dosage: UNK
     Route: 065
  29. ALENDRONATE SODIUM [Suspect]
     Active Substance: ALENDRONATE SODIUM
     Indication: Product used for unknown indication
     Dosage: UNK
     Route: 065
  30. ALENDRONATE SODIUM [Suspect]
     Active Substance: ALENDRONATE SODIUM
     Indication: Product used for unknown indication
     Dosage: UNK, UNKNOWN
     Route: 065
  31. ALENDRONATE SODIUM [Suspect]
     Active Substance: ALENDRONATE SODIUM
     Dosage: UNK
     Route: 065
  32. ALISKIREN HEMIFUMARATE [Suspect]
     Active Substance: ALISKIREN HEMIFUMARATE
     Indication: Product used for unknown indication
     Dosage: UNK
     Route: 065
  33. ALISKIREN HEMIFUMARATE [Suspect]
     Active Substance: ALISKIREN HEMIFUMARATE
     Indication: Product used for unknown indication
     Dosage: UNK, UNKNOWN
     Route: 065
  34. ALISKIREN HEMIFUMARATE [Suspect]
     Active Substance: ALISKIREN HEMIFUMARATE
     Dosage: UNK
     Route: 065
  35. ATORVASTATIN CALCIUM [Suspect]
     Active Substance: ATORVASTATIN CALCIUM
     Indication: Product used for unknown indication
     Dosage: UNK
     Route: 065
  36. ATORVASTATIN CALCIUM [Suspect]
     Active Substance: ATORVASTATIN CALCIUM
     Indication: Product used for unknown indication
     Dosage: UNK, UNKNOWN
     Route: 065
  37. ATORVASTATIN CALCIUM [Suspect]
     Active Substance: ATORVASTATIN CALCIUM
     Dosage: UNK
     Route: 065
  38. BISOPROLOL FUMARATE [Suspect]
     Active Substance: BISOPROLOL FUMARATE
     Indication: Product used for unknown indication
     Dosage: 2.5 MG
     Route: 065
  39. BISOPROLOL FUMARATE [Suspect]
     Active Substance: BISOPROLOL FUMARATE
     Indication: Product used for unknown indication
     Dosage: 2.5 MG, UNKNOWN
     Route: 065
  40. BISOPROLOL FUMARATE [Suspect]
     Active Substance: BISOPROLOL FUMARATE
     Dosage: 2.5 MG
     Route: 065
  41. BRINZOLAMIDE [Suspect]
     Active Substance: BRINZOLAMIDE
     Indication: Product used for unknown indication
     Dosage: 100 MG (EYE DROPS)
     Route: 065
  42. BRINZOLAMIDE [Suspect]
     Active Substance: BRINZOLAMIDE
     Indication: Product used for unknown indication
     Dosage: 100 MG, UNKNOWN
     Route: 065
  43. BRINZOLAMIDE [Suspect]
     Active Substance: BRINZOLAMIDE
     Dosage: 100 MG
     Route: 065
  44. RABIES IMMUNE GLOBULIN (HUMAN) [Suspect]
     Active Substance: RABIES IMMUNE GLOBULIN (HUMAN)
     Indication: Product used for unknown indication
     Dosage: UNK
     Route: 065
  45. RABIES IMMUNE GLOBULIN (HUMAN) [Suspect]
     Active Substance: RABIES IMMUNE GLOBULIN (HUMAN)
     Indication: Product used for unknown indication
     Dosage: UNK, UNKNOWN
     Route: 065
  46. RABIES IMMUNE GLOBULIN (HUMAN) [Suspect]
     Active Substance: RABIES IMMUNE GLOBULIN (HUMAN)
     Dosage: UNK
     Route: 065
  47. BUPRENORPHINE HYDROCHLORIDE [Suspect]
     Active Substance: BUPRENORPHINE HYDROCHLORIDE
     Indication: Product used for unknown indication
     Dosage: 35 G
     Route: 065
  48. BUPRENORPHINE HYDROCHLORIDE [Suspect]
     Active Substance: BUPRENORPHINE HYDROCHLORIDE
     Indication: Product used for unknown indication
     Dosage: 35 G, UNKNOWN
     Route: 065
  49. BUPRENORPHINE HYDROCHLORIDE [Suspect]
     Active Substance: BUPRENORPHINE HYDROCHLORIDE
     Dosage: 35 G
     Route: 065
  50. CODEINE PHOSPHATE [Suspect]
     Active Substance: CODEINE PHOSPHATE
     Indication: Product used for unknown indication
     Dosage: UNK
     Route: 065
  51. CODEINE PHOSPHATE [Suspect]
     Active Substance: CODEINE PHOSPHATE
     Indication: Product used for unknown indication
     Dosage: UNK, UNKNOWN
     Route: 065
  52. CODEINE PHOSPHATE [Suspect]
     Active Substance: CODEINE PHOSPHATE
     Dosage: UNK
     Route: 065
  53. ACETAMINOPHEN [Suspect]
     Active Substance: ACETAMINOPHEN
     Indication: Product used for unknown indication
     Dosage: UNK, UNKNOWN
     Route: 065
  54. ACETAMINOPHEN [Suspect]
     Active Substance: ACETAMINOPHEN
     Dosage: UNK
     Route: 065
  55. DILTIAZEM HYDROCHLORIDE [Suspect]
     Active Substance: DILTIAZEM HYDROCHLORIDE
     Indication: Product used for unknown indication
     Dosage: UNK
     Route: 065
  56. DILTIAZEM HYDROCHLORIDE [Suspect]
     Active Substance: DILTIAZEM HYDROCHLORIDE
     Indication: Product used for unknown indication
     Dosage: 120 MG, UNKNOWN
     Route: 065
  57. DILTIAZEM HYDROCHLORIDE [Suspect]
     Active Substance: DILTIAZEM HYDROCHLORIDE
     Dosage: 120 MG
     Route: 065
  58. ESCITALOPRAM OXALATE [Suspect]
     Active Substance: ESCITALOPRAM OXALATE
     Indication: Product used for unknown indication
     Dosage: UNK
     Route: 065
  59. ESCITALOPRAM OXALATE [Suspect]
     Active Substance: ESCITALOPRAM OXALATE
     Indication: Product used for unknown indication
     Dosage: UNK, UNKNOWN
     Route: 065
  60. ESCITALOPRAM OXALATE [Suspect]
     Active Substance: ESCITALOPRAM OXALATE
     Dosage: 5 MG
     Route: 065
  61. DONEPEZIL HYDROCHLORIDE [Suspect]
     Active Substance: DONEPEZIL HYDROCHLORIDE
     Indication: Product used for unknown indication
     Dosage: 5 MG
     Route: 065
  62. DONEPEZIL HYDROCHLORIDE [Suspect]
     Active Substance: DONEPEZIL HYDROCHLORIDE
     Indication: Product used for unknown indication
     Dosage: 5 MG, UNKNOWN
     Route: 065
  63. DONEPEZIL HYDROCHLORIDE [Suspect]
     Active Substance: DONEPEZIL HYDROCHLORIDE
     Dosage: 5 MG
     Route: 065
  64. DUTASTERIDE [Suspect]
     Active Substance: DUTASTERIDE
     Indication: Product used for unknown indication
     Dosage: UNK
     Route: 065
  65. DUTASTERIDE [Suspect]
     Active Substance: DUTASTERIDE
     Indication: Product used for unknown indication
     Dosage: 100 MG, UNKNOWN
     Route: 065
  66. DUTASTERIDE [Suspect]
     Active Substance: DUTASTERIDE
     Dosage: 100 MG
     Route: 065
  67. ESCHERICHIA COLI [Suspect]
     Active Substance: ESCHERICHIA COLI
     Indication: Product used for unknown indication
     Dosage: UNK
     Route: 065
  68. ESCHERICHIA COLI [Suspect]
     Active Substance: ESCHERICHIA COLI
     Indication: Product used for unknown indication
     Dosage: UNK, UNKNOWN
     Route: 065
  69. ESCHERICHIA COLI [Suspect]
     Active Substance: ESCHERICHIA COLI
     Dosage: UNK
     Route: 065
  70. ESOMEPRAZOLE SODIUM [Suspect]
     Active Substance: ESOMEPRAZOLE SODIUM
     Indication: Product used for unknown indication
     Dosage: UNK
     Route: 065
  71. ESOMEPRAZOLE SODIUM [Suspect]
     Active Substance: ESOMEPRAZOLE SODIUM
     Indication: Product used for unknown indication
     Dosage: UNK, UNKNOWN
     Route: 065
  72. ESOMEPRAZOLE SODIUM [Suspect]
     Active Substance: ESOMEPRAZOLE SODIUM
     Dosage: UNK
     Route: 065
  73. EZETIMIBE [Suspect]
     Active Substance: EZETIMIBE
     Indication: Product used for unknown indication
     Dosage: UNK
     Route: 065
  74. EZETIMIBE [Suspect]
     Active Substance: EZETIMIBE
     Indication: Product used for unknown indication
     Dosage: UNK, UNKNOWN
     Route: 065
  75. EZETIMIBE [Suspect]
     Active Substance: EZETIMIBE
     Dosage: UNK
     Route: 065
  76. CHOLECALCIFEROL [Suspect]
     Active Substance: CHOLECALCIFEROL
     Indication: Product used for unknown indication
     Dosage: 50 MG, UNKNOWN
     Route: 065
  77. CHOLECALCIFEROL [Suspect]
     Active Substance: CHOLECALCIFEROL
     Dosage: 50 MG
     Route: 065
  78. NORFLOXACIN [Suspect]
     Active Substance: NORFLOXACIN
     Indication: Product used for unknown indication
     Dosage: UNK
     Route: 065
  79. NORFLOXACIN [Suspect]
     Active Substance: NORFLOXACIN
     Indication: Product used for unknown indication
     Dosage: UNK, UNKNOWN
     Route: 065
  80. NORFLOXACIN [Suspect]
     Active Substance: NORFLOXACIN
     Dosage: UNK
     Route: 065
  81. FLUOXETINE HYDROCHLORIDE [Suspect]
     Active Substance: FLUOXETINE HYDROCHLORIDE
     Indication: Product used for unknown indication
     Dosage: UNK
     Route: 065
  82. FLUOXETINE HYDROCHLORIDE [Suspect]
     Active Substance: FLUOXETINE HYDROCHLORIDE
     Dosage: UNK UNK, UNKNOWN
     Route: 065
  83. FLUOXETINE HYDROCHLORIDE [Suspect]
     Active Substance: FLUOXETINE HYDROCHLORIDE
     Dosage: UNK
     Route: 065
  84. FLUVASTATIN SODIUM [Suspect]
     Active Substance: FLUVASTATIN SODIUM
     Indication: Product used for unknown indication
     Dosage: UNK
     Route: 065
  85. FLUVASTATIN SODIUM [Suspect]
     Active Substance: FLUVASTATIN SODIUM
     Indication: Product used for unknown indication
     Dosage: UNK, UNKNOWN
     Route: 065
  86. FLUVASTATIN SODIUM [Suspect]
     Active Substance: FLUVASTATIN SODIUM
     Dosage: UNK
     Route: 065
  87. GINKGO [Suspect]
     Active Substance: GINKGO
     Indication: Product used for unknown indication
     Dosage: 120 MG
     Route: 065
  88. GINKGO [Suspect]
     Active Substance: GINKGO
     Indication: Product used for unknown indication
     Dosage: 120 MG, UNKNOWN
     Route: 065
  89. GINKGO [Suspect]
     Active Substance: GINKGO
     Dosage: 120 MG
     Route: 065
  90. GLUCOSAMINE SULFATE [Suspect]
     Active Substance: GLUCOSAMINE SULFATE
     Indication: Product used for unknown indication
     Dosage: UNK
     Route: 065
  91. GLUCOSAMINE SULFATE [Suspect]
     Active Substance: GLUCOSAMINE SULFATE
     Indication: Product used for unknown indication
     Dosage: 1500 MG, UNKNOWN
     Route: 065
  92. GLUCOSAMINE SULFATE [Suspect]
     Active Substance: GLUCOSAMINE SULFATE
     Dosage: 1500 MG
     Route: 065
  93. HUMAN IMMUNOGLOBULIN G [Suspect]
     Active Substance: HUMAN IMMUNOGLOBULIN G
     Indication: Product used for unknown indication
     Dosage: 50 MG
     Route: 065
  94. HUMAN IMMUNOGLOBULIN G [Suspect]
     Active Substance: HUMAN IMMUNOGLOBULIN G
     Indication: Product used for unknown indication
     Dosage: 50 MG, UNKNOWN
     Route: 065
  95. HUMAN IMMUNOGLOBULIN G [Suspect]
     Active Substance: HUMAN IMMUNOGLOBULIN G
     Dosage: 50 MG
     Route: 065
  96. HYDROCHLOROTHIAZIDE [Suspect]
     Active Substance: HYDROCHLOROTHIAZIDE
     Indication: Product used for unknown indication
     Dosage: UNK
     Route: 065
  97. HYDROCHLOROTHIAZIDE [Suspect]
     Active Substance: HYDROCHLOROTHIAZIDE
     Indication: Product used for unknown indication
     Dosage: UNK, UNKNOWN
     Route: 065
  98. HYDROCHLOROTHIAZIDE [Suspect]
     Active Substance: HYDROCHLOROTHIAZIDE
     Dosage: UNK
     Route: 065
  99. ADALIMUMAB [Suspect]
     Active Substance: ADALIMUMAB
     Indication: Product used for unknown indication
     Dosage: 35 G
     Route: 065
  100. ADALIMUMAB [Suspect]
     Active Substance: ADALIMUMAB
     Indication: Product used for unknown indication
     Dosage: 35 G, UNKNOWN
     Route: 065
  101. ADALIMUMAB [Suspect]
     Active Substance: ADALIMUMAB
     Dosage: 35 G
     Route: 065
  102. IMATINIB MESYLATE [Suspect]
     Active Substance: IMATINIB MESYLATE
     Indication: Product used for unknown indication
     Route: 065
  103. INDOMETHACIN [Suspect]
     Active Substance: INDOMETHACIN
     Indication: Product used for unknown indication
     Dosage: 100 MG
     Route: 065
  104. INDOMETHACIN [Suspect]
     Active Substance: INDOMETHACIN
     Indication: Product used for unknown indication
     Dosage: 100 MG, UNKNOWN
     Route: 065
  105. INDOMETHACIN [Suspect]
     Active Substance: INDOMETHACIN
     Dosage: 100 MG
     Route: 065
  106. IODINE [Suspect]
     Active Substance: IODINE
     Indication: Product used for unknown indication
     Dosage: UNK, UNKNOWN
     Route: 065
  107. IODINE [Suspect]
     Active Substance: IODINE
     Dosage: UNK
     Route: 065
  108. HYDROMORPHONE HYDROCHLORIDE [Suspect]
     Active Substance: HYDROMORPHONE HYDROCHLORIDE
     Indication: Product used for unknown indication
     Dosage: UNK
     Route: 065
  109. HYDROMORPHONE HYDROCHLORIDE [Suspect]
     Active Substance: HYDROMORPHONE HYDROCHLORIDE
     Indication: Product used for unknown indication
     Dosage: UNK, UNKNOWN
     Route: 065
  110. HYDROMORPHONE HYDROCHLORIDE [Suspect]
     Active Substance: HYDROMORPHONE HYDROCHLORIDE
     Dosage: UNK
     Route: 065
  111. LEDIPASVIR [Suspect]
     Active Substance: LEDIPASVIR
     Indication: Product used for unknown indication
     Dosage: UNK
     Route: 065
  112. LEDIPASVIR [Suspect]
     Active Substance: LEDIPASVIR
     Indication: Product used for unknown indication
     Dosage: UNK, UNKNOWN
     Route: 065
  113. LEDIPASVIR [Suspect]
     Active Substance: LEDIPASVIR
     Dosage: UNK
     Route: 065
  114. NILOTINIB HYDROCHLORIDE MONOHYDRATE [Suspect]
     Active Substance: NILOTINIB HYDROCHLORIDE MONOHYDRATE
     Indication: Product used for unknown indication
     Dosage: UNK, UNKNOWN
     Route: 065
  115. NILOTINIB HYDROCHLORIDE MONOHYDRATE [Suspect]
     Active Substance: NILOTINIB HYDROCHLORIDE MONOHYDRATE
     Dosage: UNK
     Route: 065
  116. CILAZAPRIL ANHYDROUS [Suspect]
     Active Substance: CILAZAPRIL ANHYDROUS
     Indication: Product used for unknown indication
     Dosage: UNK, UNKNOWN
     Route: 065
  117. NITROGLYCERIN [Suspect]
     Active Substance: NITROGLYCERIN
     Indication: Product used for unknown indication
     Dosage: UNK, UNKNOWN
     Route: 065
  118. NITROGLYCERIN [Suspect]
     Active Substance: NITROGLYCERIN
     Dosage: UNK
     Route: 065
  119. PENTAZOCINE LACTATE [Suspect]
     Active Substance: PENTAZOCINE LACTATE
     Indication: Product used for unknown indication
     Dosage: 100 MG
     Route: 065
  120. PENTAZOCINE LACTATE [Suspect]
     Active Substance: PENTAZOCINE LACTATE
     Indication: Product used for unknown indication
     Dosage: 100 MG, UNKNOWN
     Route: 065
  121. PENTAZOCINE LACTATE [Suspect]
     Active Substance: PENTAZOCINE LACTATE
     Dosage: 100 MG
     Route: 065
  122. PENTOXIFYLLINE [Suspect]
     Active Substance: PENTOXIFYLLINE
     Indication: Product used for unknown indication
     Dosage: 400 MG
     Route: 065
  123. PENTOXIFYLLINE [Suspect]
     Active Substance: PENTOXIFYLLINE
     Indication: Product used for unknown indication
     Dosage: 400 MG, UNKNOWN
     Route: 065
  124. PENTOXIFYLLINE [Suspect]
     Active Substance: PENTOXIFYLLINE
     Dosage: 400 MG
     Route: 065
  125. PITAVASTATIN CALCIUM [Suspect]
     Active Substance: PITAVASTATIN CALCIUM
     Indication: Product used for unknown indication
     Dosage: UNK
     Route: 065
  126. PITAVASTATIN CALCIUM [Suspect]
     Active Substance: PITAVASTATIN CALCIUM
     Indication: Product used for unknown indication
     Dosage: UNK, UNKNOWN
     Route: 065
  127. PITAVASTATIN CALCIUM [Suspect]
     Active Substance: PITAVASTATIN CALCIUM
     Dosage: UNK
     Route: 065
  128. POTASSIUM IODIDE [Suspect]
     Active Substance: POTASSIUM IODIDE
     Indication: Product used for unknown indication
     Dosage: UNK
     Route: 065
  129. POTASSIUM IODIDE [Suspect]
     Active Substance: POTASSIUM IODIDE
     Indication: Product used for unknown indication
     Dosage: UNK, UNKNOWN
     Route: 065
  130. POTASSIUM IODIDE [Suspect]
     Active Substance: POTASSIUM IODIDE
     Dosage: UNK
     Route: 065
  131. PRAVASTATIN SODIUM [Suspect]
     Active Substance: PRAVASTATIN SODIUM
     Indication: Product used for unknown indication
     Dosage: UNK
     Route: 065
  132. PRAVASTATIN SODIUM [Suspect]
     Active Substance: PRAVASTATIN SODIUM
     Indication: Product used for unknown indication
     Dosage: UNK, UNKNOWN
     Route: 065
  133. PRAVASTATIN SODIUM [Suspect]
     Active Substance: PRAVASTATIN SODIUM
     Dosage: UNK
     Route: 065
  134. PROPRANOLOL HYDROCHLORIDE [Suspect]
     Active Substance: PROPRANOLOL HYDROCHLORIDE
     Indication: Product used for unknown indication
     Dosage: UNK
     Route: 065
  135. PROPRANOLOL HYDROCHLORIDE [Suspect]
     Active Substance: PROPRANOLOL HYDROCHLORIDE
     Indication: Product used for unknown indication
     Dosage: UNK UNK, UNKNOWN
     Route: 065
  136. PROPRANOLOL HYDROCHLORIDE [Suspect]
     Active Substance: PROPRANOLOL HYDROCHLORIDE
     Dosage: UNK
     Route: 065
  137. HUMAN RABIES VIRUS IMMUNE GLOBULIN [Suspect]
     Active Substance: HUMAN RABIES VIRUS IMMUNE GLOBULIN
     Indication: Product used for unknown indication
     Route: 065
  138. SERTRALINE [Suspect]
     Active Substance: SERTRALINE HYDROCHLORIDE
     Indication: Product used for unknown indication
     Dosage: UNK
     Route: 065
  139. SERTRALINE [Suspect]
     Active Substance: SERTRALINE HYDROCHLORIDE
     Indication: Product used for unknown indication
     Dosage: UNK, UNKNOWN
     Route: 065
  140. SERTRALINE [Suspect]
     Active Substance: SERTRALINE HYDROCHLORIDE
     Dosage: UNK
     Route: 065
  141. SERTRALINE HYDROCHLORIDE [Suspect]
     Active Substance: SERTRALINE HYDROCHLORIDE
     Indication: Product used for unknown indication
     Dosage: UNK
     Route: 065
  142. SERTRALINE HYDROCHLORIDE [Suspect]
     Active Substance: SERTRALINE HYDROCHLORIDE
     Indication: Product used for unknown indication
     Dosage: UNK, UNKNOWN
     Route: 065
  143. SERTRALINE HYDROCHLORIDE [Suspect]
     Active Substance: SERTRALINE HYDROCHLORIDE
     Dosage: UNK
     Route: 065
  144. SODIUM PICOSULFATE [Suspect]
     Active Substance: SODIUM PICOSULFATE
     Indication: Product used for unknown indication
     Dosage: 35 G
     Route: 065
  145. SODIUM PICOSULFATE [Suspect]
     Active Substance: SODIUM PICOSULFATE
     Indication: Product used for unknown indication
     Dosage: 35 G, UNKNOWN
     Route: 065
  146. SODIUM PICOSULFATE [Suspect]
     Active Substance: SODIUM PICOSULFATE
     Dosage: 35 G
     Route: 065
  147. SOFOSBUVIR [Suspect]
     Active Substance: SOFOSBUVIR
     Indication: Product used for unknown indication
     Dosage: UNK
     Route: 065
  148. SOFOSBUVIR [Suspect]
     Active Substance: SOFOSBUVIR
     Indication: Product used for unknown indication
     Dosage: UNK, UNKNOWN
     Route: 065
  149. SOFOSBUVIR [Suspect]
     Active Substance: SOFOSBUVIR
     Dosage: UNK
     Route: 065
  150. TELMISARTAN [Suspect]
     Active Substance: TELMISARTAN
     Indication: Product used for unknown indication
     Dosage: UNK
     Route: 065
  151. TELMISARTAN [Suspect]
     Active Substance: TELMISARTAN
     Indication: Product used for unknown indication
     Dosage: UNK, UNKNOWN
     Route: 065
  152. TELMISARTAN [Suspect]
     Active Substance: TELMISARTAN
     Dosage: UNK
     Route: 065
  153. TRAMADOL HYDROCHLORIDE [Suspect]
     Active Substance: TRAMADOL HYDROCHLORIDE
     Indication: Product used for unknown indication
     Dosage: UNK
     Route: 065
  154. TRAMADOL HYDROCHLORIDE [Suspect]
     Active Substance: TRAMADOL HYDROCHLORIDE
     Indication: Product used for unknown indication
     Dosage: UNK, UNKNOWN
     Route: 065
  155. TRAMADOL HYDROCHLORIDE [Suspect]
     Active Substance: TRAMADOL HYDROCHLORIDE
     Dosage: UNK
     Route: 065
  156. VENLAFAXINE HYDROCHLORIDE [Suspect]
     Active Substance: VENLAFAXINE HYDROCHLORIDE
     Indication: Product used for unknown indication
     Dosage: 100 MG
     Route: 065
  157. VENLAFAXINE HYDROCHLORIDE [Suspect]
     Active Substance: VENLAFAXINE HYDROCHLORIDE
     Indication: Product used for unknown indication
     Dosage: 100 MG, UNKNOWN
     Route: 065
  158. VENLAFAXINE HYDROCHLORIDE [Suspect]
     Active Substance: VENLAFAXINE HYDROCHLORIDE
     Dosage: 100 MG
     Route: 065
  159. VERAPAMIL HYDROCHLORIDE [Suspect]
     Active Substance: VERAPAMIL HYDROCHLORIDE
     Indication: Product used for unknown indication
     Dosage: 120 MG
     Route: 065
  160. VERAPAMIL HYDROCHLORIDE [Suspect]
     Active Substance: VERAPAMIL HYDROCHLORIDE
     Indication: Product used for unknown indication
     Dosage: 120 MG, UNKNOWN
     Route: 065
  161. VERAPAMIL HYDROCHLORIDE [Suspect]
     Active Substance: VERAPAMIL HYDROCHLORIDE
     Dosage: 120 MG
     Route: 065
  162. VORTIOXETINE [Suspect]
     Active Substance: VORTIOXETINE
     Indication: Product used for unknown indication
     Dosage: UNK
     Route: 065
  163. VORTIOXETINE [Suspect]
     Active Substance: VORTIOXETINE
     Indication: Product used for unknown indication
     Dosage: UNK, UNKNOWN
     Route: 065
  164. VORTIOXETINE [Suspect]
     Active Substance: VORTIOXETINE
     Dosage: UNK
     Route: 065
  165. LEVOCETIRIZINE DIHYDROCHLORIDE [Suspect]
     Active Substance: LEVOCETIRIZINE DIHYDROCHLORIDE
     Indication: Product used for unknown indication
     Dosage: 5 MG
     Route: 065
  166. LEVOCETIRIZINE DIHYDROCHLORIDE [Suspect]
     Active Substance: LEVOCETIRIZINE DIHYDROCHLORIDE
     Indication: Product used for unknown indication
     Dosage: 5 MG, UNKNOWN
     Route: 065
  167. LEVOCETIRIZINE DIHYDROCHLORIDE [Suspect]
     Active Substance: LEVOCETIRIZINE DIHYDROCHLORIDE
     Dosage: 5 MG
     Route: 065
  168. IMATINIB MESYLATE [Suspect]
     Active Substance: IMATINIB MESYLATE
     Indication: Product used for unknown indication
     Dosage: UNK
     Route: 065
  169. IMATINIB MESYLATE [Suspect]
     Active Substance: IMATINIB MESYLATE
     Indication: Product used for unknown indication
     Dosage: UNK, UNKNOWN
     Route: 065
  170. ZOMETA [Suspect]
     Active Substance: ZOLEDRONIC ACID
     Indication: Product used for unknown indication
     Dosage: 1500 MG
     Route: 065
  171. ZOMETA [Suspect]
     Active Substance: ZOLEDRONIC ACID
     Indication: Product used for unknown indication
     Dosage: UNK, UNKNOWN
     Route: 065
  172. ZOMETA [Suspect]
     Active Substance: ZOLEDRONIC ACID
     Dosage: UNK
     Route: 065
  173. SIMVASTATIN [Suspect]
     Active Substance: SIMVASTATIN
     Indication: Product used for unknown indication
     Dosage: UNK, UNKNOWN
     Route: 065
  174. TAMSULOSIN HYDROCHLORIDE [Suspect]
     Active Substance: TAMSULOSIN HYDROCHLORIDE
     Indication: Product used for unknown indication
     Dosage: UNK, UNKNOWN
     Route: 065
  175. RIBAVIRIN [Suspect]
     Active Substance: RIBAVIRIN
     Indication: Product used for unknown indication
     Dosage: 5 MG, UNKNOWN
     Route: 065
  176. IBANDRONIC ACID [Suspect]
     Active Substance: IBANDRONIC ACID
     Indication: Product used for unknown indication
     Dosage: UNK, UNKNOWN
     Route: 065
  177. FENOFIBRATE [Suspect]
     Active Substance: FENOFIBRATE
     Indication: Product used for unknown indication
     Dosage: 100 MG, UNKNOWN
     Route: 065
  178. LETROZOLE [Suspect]
     Active Substance: LETROZOLE
     Indication: Product used for unknown indication
     Dosage: UNK, UNKNOWN
     Route: 065
  179. CELECOXIB [Suspect]
     Active Substance: CELECOXIB
     Indication: Product used for unknown indication
     Dosage: 100 MG, UNKNOWN
     Route: 065
  180. NIMESULIDE [Suspect]
     Active Substance: NIMESULIDE
     Indication: Product used for unknown indication
     Dosage: UNK, UNKNOWN
     Route: 065
  181. DOCETAXEL [Suspect]
     Active Substance: DOCETAXEL
     Indication: Product used for unknown indication
     Dosage: 100 MG, UNKNOWN
     Route: 065
  182. NILOTINIB [Suspect]
     Active Substance: NILOTINIB
     Indication: Product used for unknown indication
     Route: 065

REACTIONS (24)
  - Coma [Fatal]
  - Tachycardia [Fatal]
  - Head discomfort [Fatal]
  - Amaurosis fugax [Fatal]
  - Ocular discomfort [Fatal]
  - Haemorrhagic stroke [Fatal]
  - Chills [Fatal]
  - Fatigue [Fatal]
  - Insomnia [Fatal]
  - Altered state of consciousness [Fatal]
  - Pruritus [Fatal]
  - Eye pain [Fatal]
  - Arthralgia [Fatal]
  - Fall [Fatal]
  - Cardio-respiratory arrest [Fatal]
  - Diarrhoea [Fatal]
  - Haematemesis [Fatal]
  - Dizziness [Fatal]
  - Sepsis [Fatal]
  - Ascites [Fatal]
  - Blindness [Fatal]
  - Abdominal pain [Fatal]
  - Nausea [Fatal]
  - Dyspnoea [Fatal]
